FAERS Safety Report 9335193 (Version 3)
Quarter: 2013Q3

REPORT INFORMATION
  Report Type: Spontaneous
  Country: JP (occurrence: JP)
  Receive Date: 20130606
  Receipt Date: 20130801
  Transmission Date: 20140515
  Serious: Yes (Hospitalization)
  Sender: FDA-Public Use
  Company Number: JP-GLAXOSMITHKLINE-B0896111A

PATIENT
  Age: 60 Year
  Sex: Female

DRUGS (2)
  1. PAXIL CR [Suspect]
     Indication: DEPRESSION
     Route: 048
  2. PROCHLORPERAZINE MALEATE [Suspect]
     Indication: NAUSEA
     Route: 065

REACTIONS (5)
  - Parkinsonism [Recovered/Resolved]
  - Parkinson^s disease [Recovered/Resolved]
  - Tremor [Recovered/Resolved]
  - Parkinsonian gait [Recovered/Resolved]
  - Dysphagia [Recovered/Resolved]
